FAERS Safety Report 10975174 (Version 2)
Quarter: 2015Q2

REPORT INFORMATION
  Report Type: Report from Study
  Country: JP (occurrence: JP)
  Receive Date: 20150401
  Receipt Date: 20150416
  Transmission Date: 20150821
  Serious: Yes (Hospitalization)
  Sender: FDA-Public Use
  Company Number: JP-BAYER-2015-085896

PATIENT
  Age: 83 Year
  Sex: Male
  Weight: 52 kg

DRUGS (2)
  1. REGORAFENIB [Suspect]
     Active Substance: REGORAFENIB
     Indication: COLORECTAL CANCER RECURRENT
     Dosage: 160 MG, QD
     Route: 048
     Dates: start: 20150304, end: 20150311
  2. FUNGUARD [Concomitant]
     Active Substance: MICAFUNGIN SODIUM
     Indication: FUNGAL INFECTION
     Dosage: 150 MG/DAY
     Dates: start: 20150328, end: 20150401

REACTIONS (3)
  - Platelet count decreased [None]
  - Pneumonia [Recovering/Resolving]
  - Lung disorder [Recovering/Resolving]

NARRATIVE: CASE EVENT DATE: 20150311
